FAERS Safety Report 21023840 (Version 1)
Quarter: 2022Q2

REPORT INFORMATION
  Report Type: Spontaneous
  Country: US (occurrence: None)
  Receive Date: 20220629
  Receipt Date: 20220629
  Transmission Date: 20220721
  Serious: Yes (unspecified)
  Sender: FDA-Public Use
  Company Number: None

PATIENT
  Age: 61 Year
  Sex: Male
  Weight: 128.25 kg

DRUGS (1)
  1. TRULICITY [Suspect]
     Active Substance: DULAGLUTIDE
     Indication: Diabetes mellitus
     Dosage: FREQUENCY : WEEKLY;?
     Route: 058
     Dates: start: 20220506, end: 20220617

REACTIONS (9)
  - Gastrointestinal disorder [None]
  - Insomnia [None]
  - Myalgia [None]
  - Fatigue [None]
  - Malaise [None]
  - Depression [None]
  - Diabetes mellitus inadequate control [None]
  - Abnormal weight gain [None]
  - Dyskinesia [None]

NARRATIVE: CASE EVENT DATE: 20220619
